FAERS Safety Report 9467166 (Version 2)
Quarter: 2013Q3

REPORT INFORMATION
  Report Type: Spontaneous
  Country: AU (occurrence: AU)
  Receive Date: 20130820
  Receipt Date: 20130910
  Transmission Date: 20140515
  Serious: Yes (Hospitalization, Other)
  Sender: FDA-Public Use
  Company Number: AU-ABBOTT-13X-008-1131976-00

PATIENT
  Age: 4 Year
  Sex: Male

DRUGS (1)
  1. CREON [Suspect]
     Indication: PRODUCT USED FOR UNKNOWN INDICATION

REACTIONS (9)
  - Malabsorption [Unknown]
  - Unevaluable event [Unknown]
  - Drug ineffective [Unknown]
  - Product physical issue [Unknown]
  - Incorrect product storage [Unknown]
  - Malaise [Unknown]
  - Abdominal pain [Unknown]
  - Abnormal faeces [Unknown]
  - Dyspepsia [Unknown]
